FAERS Safety Report 16748372 (Version 8)
Quarter: 2020Q2

REPORT INFORMATION
  Report Type: Report from Study
  Country: None (occurrence: US)
  Receive Date: 20190828
  Receipt Date: 20200624
  Transmission Date: 20200713
  Serious: Yes (Hospitalization, Other)
  Sender: FDA-Public Use
  Company Number: US-ABBVIE-19K-163-2902953-00

PATIENT
  Age: 51 Year
  Sex: Female
  Weight: 86.26 kg

DRUGS (4)
  1. HUMIRA [Suspect]
     Active Substance: ADALIMUMAB
     Indication: RHEUMATOID ARTHRITIS
     Route: 058
     Dates: start: 20190122, end: 20190816
  2. ACETAMINOPHEN W/HYDROCODONE [Concomitant]
     Active Substance: ACETAMINOPHEN\HYDROCODONE
     Indication: PAIN
  3. HUMIRA [Suspect]
     Active Substance: ADALIMUMAB
     Route: 058
     Dates: start: 2019
  4. GABAPENTIN. [Concomitant]
     Active Substance: GABAPENTIN
     Indication: RESTLESS LEGS SYNDROME

REACTIONS (23)
  - Sinus tachycardia [Recovered/Resolved]
  - Anxiety [Not Recovered/Not Resolved]
  - Hip surgery [Not Recovered/Not Resolved]
  - Impaired self-care [Recovered/Resolved]
  - Focal dyscognitive seizures [Recovered/Resolved]
  - Respiratory arrest [Unknown]
  - Gait disturbance [Recovered/Resolved]
  - Mobility decreased [Unknown]
  - Electrocardiogram T wave abnormal [Recovered/Resolved]
  - Mental status changes [Recovered/Resolved]
  - Arthropathy [Unknown]
  - Loss of personal independence in daily activities [Recovering/Resolving]
  - Panic attack [Unknown]
  - Arthralgia [Unknown]
  - Musculoskeletal disorder [Unknown]
  - Depression [Not Recovered/Not Resolved]
  - Pain in extremity [Not Recovered/Not Resolved]
  - Restless legs syndrome [Not Recovered/Not Resolved]
  - Joint swelling [Unknown]
  - Fibromyalgia [Not Recovered/Not Resolved]
  - Fatigue [Unknown]
  - Joint stiffness [Unknown]
  - Pain [Unknown]

NARRATIVE: CASE EVENT DATE: 2019
